FAERS Safety Report 20601781 (Version 1)
Quarter: 2022Q1

REPORT INFORMATION
  Report Type: Spontaneous
  Country: FR (occurrence: FR)
  Receive Date: 20220316
  Receipt Date: 20220316
  Transmission Date: 20220423
  Serious: Yes (Hospitalization)
  Sender: FDA-Public Use
  Company Number: None

PATIENT
  Age: 26 Year
  Sex: Female

DRUGS (3)
  1. ALPRAZOLAM [Suspect]
     Active Substance: ALPRAZOLAM
     Indication: Rehabilitation therapy
     Dosage: UNK (8 TABLETS PER DAY THEN 3 TO 4 TIMES PER WEEK FOR RECREATIONAL PURPOSES)
     Route: 048
     Dates: start: 2018, end: 202109
  2. ACETAMINOPHEN\CODEINE PHOSPHATE [Suspect]
     Active Substance: ACETAMINOPHEN\CODEINE PHOSPHATE
     Indication: Anxiolytic therapy
     Dosage: UNK (2 TIMES A WEEK FOR ANXIOLYTIC PURPOSES)
     Route: 048
     Dates: start: 202010, end: 202012
  3. ACETAMINOPHEN\GUAIFENESIN\OXOMEMAZINE\SODIUM BENZOATE [Suspect]
     Active Substance: ACETAMINOPHEN\GUAIFENESIN\OXOMEMAZINE\SODIUM BENZOATE
     Indication: Product used for unknown indication
     Dosage: UNK
     Route: 048
     Dates: start: 201909, end: 202006

REACTIONS (1)
  - Intentional product misuse [Unknown]

NARRATIVE: CASE EVENT DATE: 20180101
